FAERS Safety Report 9892236 (Version 1)
Quarter: 2014Q1

REPORT INFORMATION
  Report Type: Spontaneous
  Country: US (occurrence: US)
  Receive Date: 20140212
  Receipt Date: 20140212
  Transmission Date: 20141002
  Serious: No
  Sender: FDA-Public Use
  Company Number: US-MALLINCKRODT-T201304988

PATIENT
  Age: 86 Year
  Sex: Female

DRUGS (5)
  1. FENTANYL TRANSDERMAL SYSTEM [Suspect]
     Indication: ARTHRALGIA
     Dosage: 25 UG/HR, Q72H
     Route: 062
  2. AZOR                               /06230801/ [Concomitant]
     Indication: HYPERTENSION
     Dosage: UNK
  3. CILOSTAZOL [Concomitant]
     Indication: POOR PERIPHERAL CIRCULATION
     Dosage: UNK
  4. MELOXICAM [Concomitant]
     Indication: ANTIINFLAMMATORY THERAPY
     Dosage: UNK
  5. OMEPRAZOLE [Concomitant]
     Indication: GASTROOESOPHAGEAL REFLUX DISEASE
     Dosage: UNK

REACTIONS (1)
  - Facial pain [Recovered/Resolved]
